FAERS Safety Report 7866562-7 (Version None)
Quarter: 2011Q4

REPORT INFORMATION
  Report Type: 
  Country: None (occurrence: None)
  Receive Date: 20111028
  Receipt Date: 20110707
  Transmission Date: 20120403
  Serious: No
  Sender: FDA-Public Use
  Company Number: US-GLAXOSMITHKLINE-A0935333A

PATIENT
  Age: 70 Year
  Sex: Female

DRUGS (8)
  1. LIPITOR [Concomitant]
  2. VITAMIN TAB [Concomitant]
  3. SYNTHROID [Concomitant]
  4. LORSEDIN [Concomitant]
  5. ADVAIR DISKUS 100/50 [Suspect]
     Indication: ASTHMA
     Dosage: 1PUFF TWICE PER DAY
     Route: 055
     Dates: start: 20050101
  6. VENTOLIN HFA [Concomitant]
  7. INDAPAMIDE [Concomitant]
  8. METFORMIN HCL [Concomitant]

REACTIONS (2)
  - DYSPHONIA [None]
  - CANDIDIASIS [None]
